FAERS Safety Report 6743379-8 (Version None)
Quarter: 2010Q2

REPORT INFORMATION
  Report Type: 
  Country: None (occurrence: None)
  Receive Date: 20100527
  Receipt Date: 20100518
  Transmission Date: 20101027
  Serious: Yes (Disabling, Other)
  Sender: FDA-Public Use
  Company Number: FR-MYLANLABS-2005S1002635

PATIENT
  Age: 10 Year
  Sex: Male

DRUGS (18)
  1. MERCAPTAMINE BITARTRATE [Suspect]
     Indication: CYSTINOSIS
     Route: 048
     Dates: start: 20021001
  2. MERCAPTAMINE BITARTRATE [Suspect]
     Route: 048
  3. MERCAPTAMINE BITARTRATE [Suspect]
     Route: 048
  4. CYSTEAMINE /00492501/ [Suspect]
     Indication: CYSTINOSIS
     Route: 048
     Dates: start: 20010301, end: 20020101
  5. CYSTEAMINE /00492501/ [Suspect]
     Route: 048
     Dates: start: 20020101, end: 20020601
  6. CYSTEAMINE /00492501/ [Suspect]
     Route: 048
     Dates: start: 20020601, end: 20020901
  7. LEVOTHYROXINE SODIUM [Concomitant]
     Dates: start: 19911201
  8. HUMAN GROWTH HORMONE, RECOMBINANT [Concomitant]
     Dates: start: 19960401, end: 20020901
  9. EPOGEN [Concomitant]
     Dates: start: 20001201, end: 20030401
  10. ACE INHIBITOR NOS [Concomitant]
     Dates: start: 20040701
  11. L-CARNITHINE [Concomitant]
     Dates: start: 19940101
  12. CHOLECALCIFEROL [Concomitant]
  13. FOLIC ACID [Concomitant]
  14. PHOSPHATE [Concomitant]
  15. SODIUM CHLORIDE [Concomitant]
     Dates: start: 20010101
  16. SCHOLL SOLUTION [Concomitant]
     Dates: start: 19910101, end: 20030101
  17. HYDROCHLOROTHIAZIDE [Concomitant]
     Dates: start: 19910101, end: 20000101
  18. CYSTEAMINE /00492501/ [Concomitant]
     Route: 047

REACTIONS (8)
  - ARTHRALGIA [None]
  - KNEE DEFORMITY [None]
  - PAIN IN EXTREMITY [None]
  - SCOLIOSIS [None]
  - SENSORIMOTOR DISORDER [None]
  - SKIN FRAGILITY [None]
  - SKIN LESION [None]
  - SKIN STRIAE [None]
